FAERS Safety Report 18975523 (Version 1)
Quarter: 2021Q1

REPORT INFORMATION
  Report Type: Spontaneous
  Country: CN (occurrence: CN)
  Receive Date: 20210306
  Receipt Date: 20210306
  Transmission Date: 20210420
  Serious: Yes (Other)
  Sender: FDA-Public Use
  Company Number: CN-ORGANON-O2103CHN000298

PATIENT
  Sex: Female
  Weight: 28.5 kg

DRUGS (3)
  1. ACYCLOVIR [ACICLOVIR] [Suspect]
     Active Substance: ACYCLOVIR
     Indication: HERPES VIRUS INFECTION
     Dosage: 0.2 GRAM, TID
     Route: 048
     Dates: start: 20210128, end: 20210201
  2. ZOCOR [Suspect]
     Active Substance: SIMVASTATIN
     Dosage: 5 MILLIGRAM, QD
     Route: 048
     Dates: start: 20210201
  3. ZOCOR [Suspect]
     Active Substance: SIMVASTATIN
     Indication: LIPIDS INCREASED
     Dosage: 10MG, ORAL
     Route: 048
     Dates: start: 20210125, end: 20210131

REACTIONS (1)
  - Liver injury [Recovering/Resolving]

NARRATIVE: CASE EVENT DATE: 20210131
